FAERS Safety Report 16030004 (Version 7)
Quarter: 2023Q1

REPORT INFORMATION
  Report Type: Spontaneous
  Country: US (occurrence: US)
  Receive Date: 20190304
  Receipt Date: 20230301
  Transmission Date: 20230418
  Serious: Yes (Death, Hospitalization, Other)
  Sender: FDA-Public Use
  Company Number: US-GLAXOSMITHKLINE-US2019GSK038544

PATIENT

DRUGS (2)
  1. PREVACID 24 HR [Suspect]
     Active Substance: LANSOPRAZOLE
     Indication: Product used for unknown indication
     Dosage: UNK
     Route: 048
     Dates: start: 20070413
  2. PREVACID [Suspect]
     Active Substance: LANSOPRAZOLE
     Indication: Product used for unknown indication
     Dosage: UNK
     Route: 065

REACTIONS (14)
  - Death [Fatal]
  - Acute kidney injury [Unknown]
  - Chronic kidney disease [Unknown]
  - Nephrectomy [Unknown]
  - Renal injury [Unknown]
  - Proteinuria [Unknown]
  - Hydronephrosis [Unknown]
  - Single functional kidney [Unknown]
  - End stage renal disease [Unknown]
  - Renal failure [Unknown]
  - Renal impairment [Unknown]
  - Hyperchlorhydria [Unknown]
  - Rebound acid hypersecretion [Unknown]
  - Renal disorder [Unknown]

NARRATIVE: CASE EVENT DATE: 20090101
